FAERS Safety Report 23260603 (Version 4)
Quarter: 2024Q3

REPORT INFORMATION
  Report Type: Spontaneous
  Country: US (occurrence: US)
  Receive Date: 20231205
  Receipt Date: 20240704
  Transmission Date: 20241017
  Serious: Yes (Hospitalization)
  Sender: SANOFI AVENTIS
  Company Number: US-SA-SAC20231011001145

PATIENT
  Age: 51 Year
  Sex: Female

DRUGS (4)
  1. DUPIXENT [Suspect]
     Active Substance: DUPILUMAB
     Indication: Asthma
     Dosage: 600 MG, 1X
     Route: 058
     Dates: start: 20230711, end: 20230711
  2. DUPIXENT [Suspect]
     Active Substance: DUPILUMAB
     Dosage: 300 MG QOW
     Route: 058
     Dates: start: 202307
  3. IPRATROPIUM [Concomitant]
     Active Substance: IPRATROPIUM
  4. KARBINAL ER [Concomitant]
     Active Substance: CARBINOXAMINE MALEATE
     Dosage: UNK

REACTIONS (3)
  - Hospitalisation [Unknown]
  - Sinusitis [Unknown]
  - Inappropriate schedule of product administration [Unknown]

NARRATIVE: CASE EVENT DATE: 20230701
